FAERS Safety Report 10170554 (Version 3)
Quarter: 2015Q1

REPORT INFORMATION
  Report Type: Report from Study
  Country: DE (occurrence: DE)
  Receive Date: 20140513
  Receipt Date: 20150318
  Transmission Date: 20150720
  Serious: Yes (Death)
  Sender: FDA-Public Use
  Company Number: DE-ABBVIE-14P-062-1237050-00

PATIENT
  Age: 78 Year
  Sex: Male

DRUGS (3)
  1. DOCETAXEL. [Concomitant]
     Active Substance: DOCETAXEL
     Indication: PRODUCT USED FOR UNKNOWN INDICATION
     Dates: start: 20130709
  2. XGEVA [Concomitant]
     Active Substance: DENOSUMAB
     Indication: PRODUCT USED FOR UNKNOWN INDICATION
     Dates: start: 20121228
  3. TRENANTONE [Suspect]
     Active Substance: LEUPROLIDE ACETATE
     Indication: PROSTATE CANCER
     Route: 065
     Dates: start: 20121228, end: 20131017

REACTIONS (4)
  - Metastases to lung [Fatal]
  - Multi-organ failure [Fatal]
  - Anaemia [Fatal]
  - Prostate cancer [Fatal]

NARRATIVE: CASE EVENT DATE: 20140110
